FAERS Safety Report 8172949-8 (Version None)
Quarter: 2012Q1

REPORT INFORMATION
  Report Type: 
  Country: None (occurrence: None)
  Receive Date: 20120229
  Receipt Date: 20120220
  Transmission Date: 20120608
  Serious: Yes (Death, Hospitalization)
  Sender: FDA-Public Use
  Company Number: FR-BRISTOL-MYERS SQUIBB COMPANY-16409351

PATIENT
  Age: 84 Year
  Sex: Female

DRUGS (10)
  1. IMOVANE [Concomitant]
  2. ACETAMINOPHEN AND TRAMADOL HCL [Concomitant]
  3. DICLOFENAC SODIUM [Concomitant]
  4. VITAMIN B-12 [Concomitant]
  5. LASIX [Concomitant]
  6. COUMADIN [Suspect]
     Indication: ATRIAL FIBRILLATION
     Route: 048
  7. POTASSIUM CHLORIDE [Concomitant]
  8. ATORVASTATIN [Concomitant]
  9. IRBESARTAN [Concomitant]
  10. MIANSERIN [Concomitant]

REACTIONS (6)
  - MYDRIASIS [None]
  - LOSS OF CONSCIOUSNESS [None]
  - MALAISE [None]
  - INTERNATIONAL NORMALISED RATIO INCREASED [None]
  - HEADACHE [None]
  - DEATH [None]
